FAERS Safety Report 10627460 (Version 1)
Quarter: 2014Q4

REPORT INFORMATION
  Report Type: Spontaneous
  Country: DE (occurrence: DE)
  Receive Date: 20141205
  Receipt Date: 20141205
  Transmission Date: 20150529
  Serious: Yes (Other)
  Sender: FDA-Public Use
  Company Number: PHHY2014DE154746

PATIENT
  Age: 15 Year
  Sex: Female

DRUGS (8)
  1. PREDNISOLONE. [Suspect]
     Active Substance: PREDNISOLONE
     Indication: TUBERCULOSIS
     Dosage: 40 MG, BID
     Route: 065
  2. DEXAMETHASONE. [Suspect]
     Active Substance: DEXAMETHASONE
     Indication: TUBERCULOSIS
     Dosage: 7 MG, QID
     Route: 065
  3. PREDNISOLONE. [Suspect]
     Active Substance: PREDNISOLONE
     Dosage: 4 MG, TID
     Route: 065
  4. RIFAMPICIN [Concomitant]
     Active Substance: RIFAMPIN
     Indication: TUBERCULOSIS
  5. ETHAMBUTOL [Concomitant]
     Active Substance: ETHAMBUTOL HYDROCHLORIDE
     Indication: TUBERCULOSIS
     Route: 065
     Dates: end: 200812
  6. ALZIDE//PYRAZINAMIDE [Concomitant]
     Active Substance: PYRAZINAMIDE
     Indication: TUBERCULOSIS
     Route: 065
     Dates: end: 200812
  7. ISONIAZID. [Concomitant]
     Active Substance: ISONIAZID
     Indication: TUBERCULOSIS
  8. LINEZOLID. [Concomitant]
     Active Substance: LINEZOLID
     Indication: OSTEOMYELITIS BACTERIAL
     Route: 065

REACTIONS (8)
  - Osteoarthritis [Unknown]
  - Bone deformity [Unknown]
  - Groin pain [Recovering/Resolving]
  - Arthralgia [Recovering/Resolving]
  - Arthritis [Recovering/Resolving]
  - Bone marrow oedema [Recovering/Resolving]
  - Osteonecrosis [Recovering/Resolving]
  - Joint effusion [Recovering/Resolving]
